FAERS Safety Report 25944893 (Version 1)
Quarter: 2025Q4

REPORT INFORMATION
  Report Type: Spontaneous
  Country: US (occurrence: US)
  Receive Date: 20251021
  Receipt Date: 20251021
  Transmission Date: 20260118
  Serious: No
  Sender: Phathom Pharmaceuticals
  Company Number: US-PHATHOM PHARMACEUTICALS INC.-2025PHT01776

PATIENT
  Age: 53 Year
  Sex: Male

DRUGS (6)
  1. VOQUEZNA [Suspect]
     Active Substance: VONOPRAZAN FUMARATE
     Indication: Gastrooesophageal reflux disease
     Dosage: 10 MG, 1X/DAY
     Route: 048
     Dates: start: 20241203, end: 20250701
  2. VITAMINS WITH MINERALS [Concomitant]
     Active Substance: MINERALS\VITAMINS
  3. TAMSULOSIN [Concomitant]
     Active Substance: TAMSULOSIN
  4. LORATADINE [Concomitant]
     Active Substance: LORATADINE
  5. ROSUVASTATIN [Concomitant]
     Active Substance: ROSUVASTATIN
  6. CLARITIN [Concomitant]
     Active Substance: LORATADINE

REACTIONS (4)
  - Renal pain [Unknown]
  - Urine odour abnormal [Unknown]
  - Urine viscosity increased [Unknown]
  - Lethargy [Unknown]
